FAERS Safety Report 4581935-6 (Version None)
Quarter: 2005Q1

REPORT INFORMATION
  Report Type: 
  Country: None (occurrence: None)
  Receive Date: 20050127
  Receipt Date: 20040909
  Transmission Date: 20050727
  Serious: No
  Sender: FDA-Public Use
  Company Number: USA040977920

PATIENT
  Age: 5 Year
  Sex: Female
  Weight: 15 kg

DRUGS (1)
  1. STRATTERA [Suspect]
     Dosage: 25 MG DAY
     Route: 048
     Dates: start: 20030101

REACTIONS (2)
  - ABNORMAL BEHAVIOUR [None]
  - DRUG INEFFECTIVE [None]
